FAERS Safety Report 6795158-3 (Version None)
Quarter: 2010Q2

REPORT INFORMATION
  Report Type: 
  Country: None (occurrence: None)
  Receive Date: 20100625
  Receipt Date: 20100625
  Transmission Date: 20101027
  Serious: Yes (Hospitalization)
  Sender: FDA-Public Use
  Company Number: PHHO2008JP08325

PATIENT
  Sex: Female
  Weight: 49 kg

DRUGS (15)
  1. AFINITOR [Suspect]
     Indication: PANCREATIC NEUROENDOCRINE TUMOUR
     Dosage: 10 MG DAILY
     Dates: start: 20080314, end: 20080626
  2. FOIPAN [Concomitant]
     Indication: PANCREATITIS
  3. EXCELASE [Concomitant]
     Indication: PROPHYLAXIS
  4. TAKEPRON [Concomitant]
     Indication: PROPHYLAXIS
  5. URSO 250 [Concomitant]
     Indication: HEPATIC FAILURE
  6. DEXALTIN [Concomitant]
     Indication: STOMATITIS
     Dosage: UNK
     Dates: start: 20080326, end: 20080630
  7. AZUNOL [Concomitant]
     Indication: STOMATITIS
  8. RINDERON-VG [Concomitant]
     Dosage: UNK
     Dates: start: 20080409, end: 20080630
  9. CALONAL [Concomitant]
     Indication: HEADACHE
  10. DERMOVATE [Concomitant]
     Indication: RASH
     Dosage: UNK
     Dates: end: 20080630
  11. DIFLAL [Concomitant]
     Indication: RASH
     Dosage: UNK
     Dates: start: 20080424, end: 20080630
  12. HYALEIN [Concomitant]
  13. LOCOID [Concomitant]
     Indication: RASH
     Dosage: UNK
     Dates: start: 20080606, end: 20080630
  14. RINDERON [Concomitant]
     Indication: RASH
     Dosage: UNK
     Dates: start: 20080606, end: 20080630
  15. LIPITOR [Concomitant]
     Indication: HYPERLIPIDAEMIA
     Dosage: UNK

REACTIONS (13)
  - ABDOMINAL DISCOMFORT [None]
  - ABDOMINAL PAIN UPPER [None]
  - CELL MARKER INCREASED [None]
  - COUGH [None]
  - DYSPNOEA [None]
  - DYSPNOEA EXERTIONAL [None]
  - HEADACHE [None]
  - INTERSTITIAL LUNG DISEASE [None]
  - MALAISE [None]
  - MYALGIA [None]
  - PANCREATIC NEUROENDOCRINE TUMOUR [None]
  - PHARYNGEAL DISORDER [None]
  - PYREXIA [None]
